FAERS Safety Report 6409918-1 (Version None)
Quarter: 2009Q4

REPORT INFORMATION
  Report Type: 
  Country: None (occurrence: None)
  Receive Date: 20091022
  Receipt Date: 20091013
  Transmission Date: 20100525
  Serious: Yes (Hospitalization)
  Sender: FDA-Public Use
  Company Number: US-BRISTOL-MYERS SQUIBB COMPANY-14823140

PATIENT
  Age: 68 Year
  Sex: Female

DRUGS (13)
  1. CETUXIMAB [Suspect]
     Indication: NON-SMALL CELL LUNG CANCER METASTATIC
     Dosage: MOST RECENT AND 18TH INF ON 22-SEP-09.
     Route: 042
     Dates: start: 20090519, end: 20090922
  2. PACLITAXEL [Suspect]
     Indication: NON-SMALL CELL LUNG CANCER METASTATIC
     Dosage: MOST RECENT AND 6TH INF ON 09-SEP-09.
     Route: 042
     Dates: start: 20090519, end: 20090909
  3. CARBOPLATIN [Suspect]
     Indication: NON-SMALL CELL LUNG CANCER METASTATIC
     Dosage: MOST RECENT AND 6TH INF ON 09-SEP-09.
     Route: 042
     Dates: start: 20090519, end: 20090909
  4. COUMADIN [Concomitant]
     Indication: PULMONARY EMBOLISM
     Route: 048
     Dates: start: 20090801
  5. REGLAN [Concomitant]
     Dosage: AC AND HS
     Route: 065
  6. LOPRESSOR [Concomitant]
     Route: 065
  7. PROTONIX [Concomitant]
     Route: 065
  8. K-DUR [Concomitant]
     Route: 065
  9. OS-CAL + D [Concomitant]
     Route: 065
  10. ATIVAN [Concomitant]
     Route: 065
  11. OXYCONTIN [Concomitant]
     Indication: PAIN
     Route: 065
  12. VICODIN [Concomitant]
     Indication: BREAKTHROUGH PAIN
     Route: 065
  13. AMBIEN [Concomitant]
     Route: 065

REACTIONS (1)
  - ANAEMIA [None]
